FAERS Safety Report 10968703 (Version 2)
Quarter: 2015Q2

REPORT INFORMATION
  Report Type: Spontaneous
  Country: DE (occurrence: DE)
  Receive Date: 20150330
  Receipt Date: 20150423
  Transmission Date: 20150821
  Serious: Yes (Hospitalization, Other)
  Sender: FDA-Public Use
  Company Number: DE-ABBVIE-15K-062-1367364-00

PATIENT
  Age: 35 Year
  Sex: Female
  Weight: 65.8 kg

DRUGS (2)
  1. LIPOCOL [Concomitant]
     Indication: PRODUCT USED FOR UNKNOWN INDICATION
  2. HUMIRA [Suspect]
     Active Substance: ADALIMUMAB
     Indication: PRODUCT USED FOR UNKNOWN INDICATION
     Route: 065
     Dates: start: 20130103, end: 20150216

REACTIONS (11)
  - Weight increased [Unknown]
  - Proteinuria [Unknown]
  - Lupus-like syndrome [Unknown]
  - Nephrotic syndrome [Recovering/Resolving]
  - Albumin globulin ratio decreased [Unknown]
  - Renal colic [Unknown]
  - Vitamin D deficiency [Unknown]
  - Haematuria [Unknown]
  - IgA nephropathy [Recovering/Resolving]
  - Nephrolithiasis [Unknown]
  - Albumin urine present [Unknown]

NARRATIVE: CASE EVENT DATE: 2013
